FAERS Safety Report 4924823-5 (Version None)
Quarter: 2006Q1

REPORT INFORMATION
  Report Type: 
  Country: None (occurrence: None)
  Receive Date: 20060227
  Receipt Date: 20050412
  Transmission Date: 20060701
  Serious: Yes (Hospitalization)
  Sender: FDA-Public Use
  Company Number: US-MERCK-0504USA02046

PATIENT
  Age: 62 Year
  Sex: Male
  Weight: 102 kg

DRUGS (2)
  1. VIOXX [Suspect]
     Indication: PAIN MANAGEMENT
     Route: 048
     Dates: start: 20000901, end: 20040930
  2. VIOXX [Suspect]
     Indication: ARTHRITIS
     Route: 048
     Dates: start: 20000901, end: 20040930

REACTIONS (3)
  - CARDIAC DISORDER [None]
  - ISCHAEMIC STROKE [None]
  - SYNCOPE [None]
